FAERS Safety Report 12510126 (Version 1)
Quarter: 2016Q2

REPORT INFORMATION
  Report Type: Spontaneous
  Country: DE (occurrence: DE)
  Receive Date: 20160629
  Receipt Date: 20160629
  Transmission Date: 20160815
  Serious: Yes (Disabling)
  Sender: FDA-Public Use
  Company Number: DE-TEVA-670179GER

PATIENT
  Age: 55 Year
  Sex: Female
  Weight: 65 kg

DRUGS (1)
  1. CIPROFLOXACIN. [Suspect]
     Active Substance: CIPROFLOXACIN
     Indication: CYSTITIS NONINFECTIVE
     Dosage: 1000 MILLIGRAM DAILY;
     Route: 048
     Dates: start: 2015

REACTIONS (6)
  - Arthritis [Unknown]
  - Myositis [Unknown]
  - Neuritis [Unknown]
  - Visual impairment [Unknown]
  - Tendonitis [Unknown]
  - Vascular injury [Unknown]

NARRATIVE: CASE EVENT DATE: 2015
